FAERS Safety Report 6193602-6 (Version None)
Quarter: 2009Q2

REPORT INFORMATION
  Report Type: 
  Country: None (occurrence: None)
  Receive Date: 20090514
  Receipt Date: 20090430
  Transmission Date: 20091009
  Serious: Yes (Other)
  Sender: FDA-Public Use
  Company Number: 2009001315

PATIENT
  Age: 56 Year
  Sex: Female

DRUGS (5)
  1. TARCEVA [Suspect]
     Indication: NON-SMALL CELL LUNG CANCER
     Dosage: (150 MG, QD), ORAL
     Route: 048
     Dates: start: 20080925, end: 20081008
  2. DEXAMETHASONE TAB [Concomitant]
  3. MORPHINE SULFATE [Concomitant]
  4. FENTANYL [Concomitant]
  5. EFFEXOR [Concomitant]

REACTIONS (3)
  - BRAIN NEOPLASM [None]
  - DYSPHASIA [None]
  - SPEECH DISORDER [None]
